FAERS Safety Report 15633914 (Version 1)
Quarter: 2018Q4

REPORT INFORMATION
  Report Type: Spontaneous
  Country: US (occurrence: US)
  Receive Date: 20181119
  Receipt Date: 20181119
  Transmission Date: 20190205
  Serious: Yes (Other)
  Sender: FDA-Public Use
  Company Number: US-PFIZER INC-2018471761

PATIENT
  Age: 57 Year
  Sex: Male
  Weight: 124.74 kg

DRUGS (2)
  1. LYRICA [Suspect]
     Active Substance: PREGABALIN
     Indication: DIABETES MELLITUS
  2. LYRICA [Suspect]
     Active Substance: PREGABALIN
     Indication: LIMB DISCOMFORT
     Dosage: UNK

REACTIONS (3)
  - Ulcer [Unknown]
  - Osteomyelitis [Unknown]
  - Product use in unapproved indication [Unknown]
